FAERS Safety Report 4350855-4 (Version None)
Quarter: 2004Q2

REPORT INFORMATION
  Report Type: 
  Country: None (occurrence: None)
  Receive Date: 20040427
  Receipt Date: 20040413
  Transmission Date: 20050107
  Serious: Yes (Hospitalization)
  Sender: FDA-Public Use
  Company Number: 04P-167-0257642-00

PATIENT
  Age: 58 Year
  Sex: Female
  Weight: 78 kg

DRUGS (6)
  1. HUMIRA [Suspect]
     Indication: RHEUMATOID ARTHRITIS
     Dosage: 40 MG, 1 IN 2 WK, SUBCUTANEOUS
     Route: 058
     Dates: start: 20030529
  2. METHOTREXATE SODIUM [Concomitant]
  3. FOLATE [Concomitant]
  4. SULFASALAZINE [Concomitant]
  5. ROFECOXIB [Concomitant]
  6. ACETAMINOPHEN [Concomitant]

REACTIONS (1)
  - RADIUS FRACTURE [None]
